FAERS Safety Report 6250877-2 (Version None)
Quarter: 2009Q2

REPORT INFORMATION
  Report Type: 
  Country: None (occurrence: None)
  Receive Date: 20090630
  Receipt Date: 20090327
  Transmission Date: 20091009
  Serious: No
  Sender: FDA-Public Use
  Company Number: US-BAUSCH-2009BL001414

PATIENT
  Age: 66 Year
  Sex: Female

DRUGS (6)
  1. ALAWAY [Suspect]
     Indication: EYE PRURITUS
     Route: 047
     Dates: start: 20090320, end: 20090320
  2. ALAWAY [Suspect]
     Indication: LACRIMATION INCREASED
     Route: 047
     Dates: start: 20090320, end: 20090320
  3. ALAWAY [Suspect]
     Route: 047
     Dates: start: 20090327, end: 20090327
  4. ALAWAY [Suspect]
     Route: 047
     Dates: start: 20090327, end: 20090327
  5. AZOR [Concomitant]
  6. SPIRIVA [Concomitant]

REACTIONS (4)
  - CONDITION AGGRAVATED [None]
  - EYE PRURITUS [None]
  - INSTILLATION SITE IRRITATION [None]
  - LACRIMATION INCREASED [None]
